FAERS Safety Report 8070924-5 (Version None)
Quarter: 2012Q1

REPORT INFORMATION
  Report Type: 
  Country: None (occurrence: None)
  Receive Date: 20120125
  Receipt Date: 20120113
  Transmission Date: 20120608
  Serious: Yes (Other)
  Sender: FDA-Public Use
  Company Number: US-RB-033300-12

PATIENT
  Age: 71 Year
  Sex: Male

DRUGS (1)
  1. MUCINEX [Suspect]
     Indication: RESPIRATORY TRACT CONGESTION
     Route: 048

REACTIONS (1)
  - EPISTAXIS [None]
